FAERS Safety Report 6959210-1 (Version None)
Quarter: 2010Q3

REPORT INFORMATION
  Report Type: 
  Country: None (occurrence: None)
  Receive Date: 20100831
  Receipt Date: 20100824
  Transmission Date: 20110219
  Serious: Yes (Other)
  Sender: FDA-Public Use
  Company Number: US-AMGEN-QUU433776

PATIENT
  Sex: Female

DRUGS (3)
  1. NPLATE [Suspect]
     Indication: IDIOPATHIC THROMBOCYTOPENIC PURPURA
     Dates: start: 20090303
  2. RITUXAN [Concomitant]
  3. BENDAMUSTINE [Concomitant]
     Dates: start: 20100607

REACTIONS (1)
  - CHRONIC LYMPHOCYTIC LEUKAEMIA RECURRENT [None]
